FAERS Safety Report 18831097 (Version 4)
Quarter: 2021Q1

REPORT INFORMATION
  Report Type: Spontaneous
  Country: US (occurrence: US)
  Receive Date: 20210203
  Receipt Date: 20210305
  Transmission Date: 20210419
  Serious: Yes (Other)
  Sender: FDA-Public Use
  Company Number: US-GLAXOSMITHKLINE-US2021AMR026301

PATIENT
  Sex: Female

DRUGS (2)
  1. ZEJULA [Suspect]
     Active Substance: NIRAPARIB
     Dosage: 200 MG, QD
     Dates: end: 20210301
  2. ZEJULA [Suspect]
     Active Substance: NIRAPARIB
     Indication: OVARIAN CANCER
     Dosage: 200 MG, QD
     Route: 048
     Dates: start: 20210118

REACTIONS (10)
  - Laboratory test abnormal [Recovered/Resolved]
  - Nausea [Recovered/Resolved]
  - Constipation [Recovering/Resolving]
  - Blood creatinine increased [Not Recovered/Not Resolved]
  - Product dose omission in error [Unknown]
  - Arthralgia [Not Recovered/Not Resolved]
  - Intestinal obstruction [Recovered/Resolved]
  - Decreased appetite [Recovered/Resolved]
  - Hypotension [Unknown]
  - Pain in extremity [Not Recovered/Not Resolved]
